FAERS Safety Report 5750248-9 (Version None)
Quarter: 2008Q2

REPORT INFORMATION
  Report Type: 
  Country: None (occurrence: None)
  Receive Date: 20080527
  Receipt Date: 20080521
  Transmission Date: 20081010
  Serious: Yes (Hospitalization)
  Sender: FDA-Public Use
  Company Number: US-GENENTECH-258680

PATIENT
  Sex: Male
  Weight: 91.61 kg

DRUGS (5)
  1. BEVACIZUMAB [Suspect]
     Indication: OESOPHAGEAL CARCINOMA
     Dosage: 15 MG/KG, UNK
     Dates: start: 20080325
  2. ERLOTINIB [Suspect]
     Indication: OESOPHAGEAL CARCINOMA
     Dosage: 100 MG, QD
     Dates: start: 20080326
  3. PACLITAXEL [Concomitant]
     Indication: OESOPHAGEAL CARCINOMA
     Dosage: 200 MG/M2, UNK
     Dates: start: 20080325
  4. CARBOPLATIN [Concomitant]
     Indication: OESOPHAGEAL CARCINOMA
     Dosage: 5 AUC, UNK
     Dates: start: 20080325
  5. FLUOROURACIL [Concomitant]
     Indication: OESOPHAGEAL CARCINOMA
     Dosage: 495 MG, QD
     Dates: start: 20080325

REACTIONS (1)
  - WOUND EVISCERATION [None]
